FAERS Safety Report 6976970-4 (Version None)
Quarter: 2010Q3

REPORT INFORMATION
  Report Type: 
  Country: None (occurrence: None)
  Receive Date: 20100824
  Receipt Date: 20100614
  Transmission Date: 20110219
  Serious: No
  Sender: FDA-Public Use
  Company Number: 310097

PATIENT
  Age: 63 Year
  Sex: Female
  Weight: 112.9 kg

DRUGS (8)
  1. VICTOZA [Suspect]
     Indication: TYPE 2 DIABETES MELLITUS
     Dosage: 1.2 MG, QD, SUBCUTANEOUS; 0.6 MG, QD, SUBCUTANEOUS
     Route: 058
  2. ACTOS [Concomitant]
  3. LISINOPRIL [Concomitant]
  4. METANX (CALCIUM MEFOLINATE, PYRIDOXINE HYDROCHLORIDE, VITAMIN B12 NOS) [Concomitant]
  5. OMEPRAZOLE [Concomitant]
  6. FISH OIL (FISH OIL) [Concomitant]
  7. TOPROL-XL [Concomitant]
  8. ASPRIN (ACETYLSALICYLIC ACID) [Concomitant]

REACTIONS (3)
  - ERYTHEMA [None]
  - HYPERSENSITIVITY [None]
  - SWELLING [None]
